FAERS Safety Report 11909957 (Version 3)
Quarter: 2017Q4

REPORT INFORMATION
  Report Type: Spontaneous
  Country: JP (occurrence: JP)
  Receive Date: 20160112
  Receipt Date: 20171003
  Transmission Date: 20180320
  Serious: Yes (Other)
  Sender: FDA-Public Use
  Company Number: PHJP2015JP023894

PATIENT
  Age: 60 Year
  Sex: Female

DRUGS (1)
  1. ZOLEDRONATE [Suspect]
     Active Substance: ZOLEDRONIC ACID
     Indication: METASTASES TO BONE
     Route: 065

REACTIONS (7)
  - Gingival pain [Recovered/Resolved]
  - Gingival swelling [Unknown]
  - Noninfective gingivitis [Unknown]
  - Hypoaesthesia oral [Unknown]
  - Osteonecrosis of jaw [Recovered/Resolved]
  - Gingivitis [Unknown]
  - Alveolar bone resorption [Unknown]
